FAERS Safety Report 7928838-4 (Version None)
Quarter: 2011Q4

REPORT INFORMATION
  Report Type: 
  Country: None (occurrence: None)
  Receive Date: 20111118
  Receipt Date: 20111110
  Transmission Date: 20120403
  Serious: Yes (Death, Hospitalization)
  Sender: FDA-Public Use
  Company Number: GB-ROCHE-1008100

PATIENT
  Sex: Male

DRUGS (6)
  1. PREDNISOLONE [Concomitant]
     Dates: start: 20100507
  2. SALMETEROL [Concomitant]
     Dates: start: 20100507
  3. VENTOLIN [Concomitant]
     Dates: start: 20100507
  4. ADCAL-D3 [Concomitant]
     Dates: start: 20100218
  5. LUCENTIS [Suspect]
     Indication: PRODUCT USED FOR UNKNOWN INDICATION
     Route: 050
  6. OMEPRAZOLE [Concomitant]
     Dates: start: 20100218

REACTIONS (1)
  - IDIOPATHIC PULMONARY FIBROSIS [None]
